FAERS Safety Report 13023714 (Version 1)
Quarter: 2016Q4

REPORT INFORMATION
  Report Type: Spontaneous
  Country: US (occurrence: US)
  Receive Date: 20161213
  Receipt Date: 20161213
  Transmission Date: 20170207
  Serious: No
  Sender: FDA-Public Use
  Company Number: US-BAUSCH-BL-2016-021617

PATIENT
  Sex: Female

DRUGS (2)
  1. BUPROPION. [Suspect]
     Active Substance: BUPROPION
     Indication: LIBIDO DECREASED
     Route: 065
  2. ADDYI [Suspect]
     Active Substance: FLIBANSERIN
     Indication: LIBIDO DISORDER
     Route: 065

REACTIONS (7)
  - Therapeutic response unexpected [Unknown]
  - Libido increased [Unknown]
  - Wrong technique in product usage process [Unknown]
  - Off label use [Unknown]
  - Headache [Unknown]
  - Irritability [Recovered/Resolved]
  - Product use issue [Unknown]
